FAERS Safety Report 24914810 (Version 1)
Quarter: 2025Q1

REPORT INFORMATION
  Report Type: Spontaneous
  Country: ES (occurrence: ES)
  Receive Date: 20250203
  Receipt Date: 20250203
  Transmission Date: 20250409
  Serious: Yes (Other)
  Sender: AUROBINDO
  Company Number: ES-AEMPS-1618637

PATIENT
  Age: 66 Year
  Sex: Female

DRUGS (1)
  1. IBUPROFEN [Suspect]
     Active Substance: IBUPROFEN
     Indication: Pain
     Route: 048
     Dates: start: 20240702, end: 20240813

REACTIONS (1)
  - Hepatic cytolysis [Recovered/Resolved]

NARRATIVE: CASE EVENT DATE: 20240813
